FAERS Safety Report 18677003 (Version 1)
Quarter: 2020Q4

REPORT INFORMATION
  Report Type: Spontaneous
  Country: FR (occurrence: FR)
  Receive Date: 20201229
  Receipt Date: 20201229
  Transmission Date: 20210114
  Serious: Yes (Hospitalization)
  Sender: FDA-Public Use
  Company Number: FR-MYLANLABS-2020M1104234

PATIENT
  Age: 49 Year
  Sex: Male
  Weight: 115 kg

DRUGS (4)
  1. DEXAMETHASONE. [Suspect]
     Active Substance: DEXAMETHASONE
     Indication: PROPHYLAXIS
     Dosage: 8 MILLIGRAM
     Route: 042
     Dates: start: 20201116
  2. CEFAZOLIN [Suspect]
     Active Substance: CEFAZOLIN
     Indication: ANAESTHESIA
     Dosage: 2 GRAM
     Route: 042
     Dates: start: 20201116
  3. ROPIVACAINE                        /00986302/ [Suspect]
     Active Substance: ROPIVACAINE HYDROCHLORIDE
     Indication: ANAESTHESIA
     Dosage: 15 MILLILITER
     Route: 042
     Dates: start: 20201116
  4. HYPNOVEL                           /00634103/ [Suspect]
     Active Substance: MIDAZOLAM HYDROCHLORIDE
     Indication: ANAESTHESIA
     Dosage: 2 MILLIGRAM
     Route: 042
     Dates: start: 20201116

REACTIONS (3)
  - Rash [Recovered/Resolved]
  - Anaphylactic reaction [Recovered/Resolved]
  - Tachycardia [Recovered/Resolved]

NARRATIVE: CASE EVENT DATE: 20201116
